FAERS Safety Report 11811907 (Version 1)
Quarter: 2015Q4

REPORT INFORMATION
  Report Type: Spontaneous
  Country: US (occurrence: US)
  Receive Date: 20151208
  Receipt Date: 20151208
  Transmission Date: 20160305
  Serious: Yes (Other)
  Sender: FDA-Public Use
  Company Number: US-BAYER-2015-483118

PATIENT
  Age: 76 Year
  Sex: Male
  Weight: 72.56 kg

DRUGS (5)
  1. FINASTERIDE. [Concomitant]
     Active Substance: FINASTERIDE
  2. ONE A DAY 50 PLUS [Concomitant]
     Indication: VITAMIN SUPPLEMENTATION
  3. NITROGLYCERIN. [Concomitant]
     Active Substance: NITROGLYCERIN
  4. BAYER LOW DOSE [Concomitant]
     Active Substance: ASPIRIN
     Indication: ISCHAEMIC HEART DISEASE PROPHYLAXIS
     Dosage: UNK
  5. MIRALAX [Suspect]
     Active Substance: POLYETHYLENE GLYCOL 3350
     Indication: DIVERTICULITIS
     Dosage: 0.5 DF, BID
     Route: 048
     Dates: start: 201311

REACTIONS (4)
  - Mitral valve repair [Recovered/Resolved]
  - Bowel movement irregularity [None]
  - Product use issue [None]
  - Off label use [None]

NARRATIVE: CASE EVENT DATE: 2014
